FAERS Safety Report 9943028 (Version 2)
Quarter: 2014Q1

REPORT INFORMATION
  Report Type: Report from Study
  Country: CO (occurrence: CO)
  Receive Date: 20140303
  Receipt Date: 20140314
  Transmission Date: 20141002
  Serious: Yes (Death)
  Sender: FDA-Public Use
  Company Number: CO-ASTRAZENECA-2014SE14821

PATIENT
  Age: 29174 Day
  Sex: Female

DRUGS (2)
  1. BRILINTA [Suspect]
     Indication: INFARCTION
     Route: 048
     Dates: start: 20140117, end: 20140128
  2. ASA [Concomitant]

REACTIONS (1)
  - Acute myocardial infarction [Fatal]
